FAERS Safety Report 8548679-7 (Version None)
Quarter: 2012Q3

REPORT INFORMATION
  Report Type: 
  Country: None (occurrence: None)
  Receive Date: 20120730
  Receipt Date: 20120719
  Transmission Date: 20120928
  Serious: Yes (Hospitalization, Other)
  Sender: FDA-Public Use
  Company Number: BE-CELGENEUS-013-21880-12053349

PATIENT
  Sex: Female
  Weight: 62.6 kg

DRUGS (31)
  1. REVLIMID [Suspect]
     Dosage: 15 MILLIGRAM
     Route: 048
     Dates: start: 20110428, end: 20110616
  2. REVLIMID [Suspect]
     Dosage: 15 MILLIGRAM
     Route: 048
     Dates: start: 20120105, end: 20120125
  3. DEXAMETHASONE [Suspect]
     Route: 065
     Dates: start: 20120702
  4. DEXAMETHASONE [Suspect]
     Route: 065
     Dates: start: 20120703
  5. R CALM CREME [Concomitant]
     Route: 065
     Dates: start: 20120213
  6. RED BLOOD CELLS [Concomitant]
     Route: 065
     Dates: start: 20111018
  7. CETAVLEX [Concomitant]
     Route: 065
     Dates: start: 20120417
  8. REVLIMID [Suspect]
     Dosage: 25 MILLIGRAM
     Route: 048
     Dates: start: 20120202
  9. DEXAMETHASONE [Suspect]
     Route: 048
     Dates: start: 20110624, end: 20110720
  10. FLEXIUM [Concomitant]
     Route: 065
     Dates: start: 20120213
  11. PLATELETS [Concomitant]
     Route: 065
     Dates: start: 20120327
  12. POLYETHYLENE GLYCOL [Concomitant]
     Route: 065
     Dates: start: 20120430
  13. REVLIMID [Suspect]
     Route: 048
     Dates: start: 20110203, end: 20110420
  14. REVLIMID [Suspect]
     Dosage: 10 MILLIGRAM
     Route: 048
     Dates: start: 20110624, end: 20111228
  15. ASPIRIN [Concomitant]
     Indication: THROMBOSIS
     Dosage: 80 GRAM
     Route: 041
     Dates: start: 20110105
  16. REVLIMID [Suspect]
     Dosage: 10 MILLIGRAM
     Route: 048
     Dates: start: 20120426
  17. DEXAMETHASONE [Suspect]
     Route: 048
     Dates: start: 20120426
  18. DEXAMETHASONE [Suspect]
     Route: 065
     Dates: start: 20120704
  19. MEROPENEM [Concomitant]
     Route: 065
     Dates: start: 20120419, end: 20120430
  20. REVLIMID [Suspect]
     Dosage: 10 MILLIGRAM
     Route: 048
     Dates: start: 20120531
  21. REVLIMID [Suspect]
     Dosage: 10 MILLIGRAM
     Route: 048
     Dates: start: 20120530, end: 20120627
  22. BISOPROLOL FUMARATE [Concomitant]
     Route: 065
     Dates: start: 20060101
  23. FLEXIUM [Concomitant]
     Route: 065
     Dates: start: 20101002, end: 20111102
  24. DEXAMETHASONE [Suspect]
     Dosage: 2.8571 MILLIGRAM
     Route: 048
     Dates: start: 20120531
  25. DEXAMETHASONE [Suspect]
     Dosage: 2.8571 MILLIGRAM
     Route: 048
     Dates: end: 20120627
  26. SODIUM CHLORIDE [Concomitant]
     Route: 065
     Dates: start: 20120709
  27. REVLIMID [Suspect]
     Indication: MULTIPLE MYELOMA
     Dosage: 10 MILLIGRAM
     Route: 048
     Dates: start: 20110105
  28. DEXAMETHASONE [Suspect]
     Indication: MULTIPLE MYELOMA
     Route: 048
     Dates: start: 20110105
  29. SYMBICORT [Concomitant]
     Indication: COUGH
     Dosage: 4 DOSAGE FORMS
     Route: 055
     Dates: start: 20120501, end: 20120501
  30. CRANBERRY EXTRACT [Concomitant]
     Route: 065
     Dates: start: 20110301
  31. PANTOPRAZOLE [Concomitant]
     Route: 065
     Dates: start: 20120418

REACTIONS (5)
  - FEBRILE NEUTROPENIA [None]
  - PLATELET COUNT DECREASED [None]
  - LUNG SQUAMOUS CELL CARCINOMA STAGE UNSPECIFIED [None]
  - ANAEMIA [None]
  - PYREXIA [None]
